FAERS Safety Report 4542944-6 (Version None)
Quarter: 2004Q4

REPORT INFORMATION
  Report Type: 
  Country: None (occurrence: None)
  Receive Date: 20041229
  Receipt Date: 20041217
  Transmission Date: 20050328
  Serious: No
  Sender: FDA-Public Use
  Company Number: 02100-USA-04-0399

PATIENT
  Age: 75 Year
  Sex: Male

DRUGS (1)
  1. PLETAL [Suspect]

REACTIONS (2)
  - BLINDNESS [None]
  - RETINAL VEIN OCCLUSION [None]
